FAERS Safety Report 6544440-3 (Version None)
Quarter: 2010Q1

REPORT INFORMATION
  Report Type: 
  Country: None (occurrence: None)
  Receive Date: 20100120
  Receipt Date: 20100120
  Transmission Date: 20100710
  Serious: Yes (Hospitalization)
  Sender: FDA-Public Use
  Company Number: None

PATIENT
  Age: 66 Year
  Sex: Male
  Weight: 95.5 kg

DRUGS (1)
  1. ALDARA [Suspect]
     Indication: PRECANCEROUS CELLS PRESENT
     Dosage: .25 G AT 5% 3 TIMES WK CREAM APPLIED TO FOREHEAD AND SCALP
     Route: 061
     Dates: start: 20091108, end: 20091214

REACTIONS (10)
  - FEELING ABNORMAL [None]
  - FLUID INTAKE REDUCED [None]
  - FOOD POISONING [None]
  - HYPOPHAGIA [None]
  - INFLUENZA [None]
  - NAUSEA [None]
  - SKULL FRACTURE [None]
  - SOMNOLENCE [None]
  - SYNCOPE [None]
  - THIRST [None]
